FAERS Safety Report 7814946-5 (Version None)
Quarter: 2011Q4

REPORT INFORMATION
  Report Type: 
  Country: None (occurrence: None)
  Receive Date: 20111014
  Receipt Date: 20111004
  Transmission Date: 20120403
  Serious: Yes (Other)
  Sender: FDA-Public Use
  Company Number: DE-EISAI INC-E7389-01606-SPO-DE

PATIENT
  Age: 65 Year
  Sex: Female

DRUGS (1)
  1. HALAVEN [Suspect]
     Route: 042
     Dates: start: 20110801

REACTIONS (2)
  - CHILLS [None]
  - TACHYCARDIA [None]
